FAERS Safety Report 9975155 (Version 1)
Quarter: 2014Q1

REPORT INFORMATION
  Report Type: Report from Study
  Country: US (occurrence: US)
  Receive Date: 20140306
  Receipt Date: 20140306
  Transmission Date: 20141002
  Serious: No
  Sender: FDA-Public Use
  Company Number: US-ABBVIE-13P-163-1160404-00

PATIENT
  Age: 36 Year
  Sex: Female

DRUGS (12)
  1. HUMIRA [Suspect]
     Indication: BEHCET^S SYNDROME
     Dates: start: 201306
  2. BUPROPION [Concomitant]
     Indication: DEPRESSION
  3. XYZAL [Concomitant]
     Indication: HYPERSENSITIVITY
  4. YASMIN [Concomitant]
     Indication: CONTRACEPTION
  5. GABAPENTIN [Concomitant]
     Indication: PAIN
     Dosage: TAKES 1 IN AM AND 2 AT BED TIME
  6. LUNESTA [Concomitant]
     Indication: INSOMNIA
     Dosage: AT BED TIME
  7. TRAZODONE [Concomitant]
     Indication: INSOMNIA
     Dosage: AT BED TIME
  8. PROZAC [Concomitant]
     Indication: DEPRESSION
  9. PROZAC [Concomitant]
  10. PERCOCET [Concomitant]
     Indication: PAIN
     Dosage: 5-325 MG
  11. CHANTIX [Concomitant]
     Indication: EX-TOBACCO USER
  12. OMEPRAZOLE [Concomitant]
     Indication: ABDOMINAL DISCOMFORT

REACTIONS (3)
  - Migraine [Unknown]
  - Behcet^s syndrome [Not Recovered/Not Resolved]
  - Injection site pain [Not Recovered/Not Resolved]
